FAERS Safety Report 21601550 (Version 1)
Quarter: 2022Q4

REPORT INFORMATION
  Report Type: Spontaneous
  Country: US (occurrence: None)
  Receive Date: 20221115
  Receipt Date: 20221115
  Transmission Date: 20230113
  Serious: No
  Sender: FDA-Public Use
  Company Number: None

PATIENT
  Age: 69 Year
  Sex: Female
  Weight: 0.0 kg

DRUGS (1)
  1. ENBREL [Suspect]
     Active Substance: ETANERCEPT
     Indication: Psoriasis
     Dosage: INJECT 50MG  SUBCUTANEOUSLY  TWO TIMES A WEEK  72-96 HOURS APART USING THE AOTO TOUCH DEVICE FOR 3
     Route: 058
     Dates: start: 202106

REACTIONS (1)
  - Malaise [None]
